FAERS Safety Report 5705619-3 (Version None)
Quarter: 2008Q2

REPORT INFORMATION
  Report Type: 
  Country: None (occurrence: None)
  Receive Date: 20080411
  Receipt Date: 20080402
  Transmission Date: 20081010
  Serious: Yes (Life-Threatening)
  Sender: FDA-Public Use
  Company Number: IDA-00031

PATIENT
  Age: 74 Year
  Sex: Male

DRUGS (3)
  1. INDERAL [Suspect]
     Indication: ATRIAL FIBRILLATION
     Dosage: 60 MG ONCE PO, FORMULATION: TABL
     Route: 048
     Dates: start: 20070903
  2. INDERAL [Suspect]
     Indication: HYPERTROPHIC CARDIOMYOPATHY
     Dosage: 60 MG ONCE PO, FORMULATION: TABL
     Route: 048
     Dates: start: 20070903
  3. VERAPAMIL HYDROCHLORIDE [Suspect]
     Indication: ATRIAL FIBRILLATION
     Dosage: SEE IMAGE
     Route: 048
     Dates: start: 20061206

REACTIONS (9)
  - ACCIDENTAL OVERDOSE [None]
  - ATRIOVENTRICULAR BLOCK [None]
  - DRUG INTERACTION [None]
  - DRUG LEVEL DECREASED [None]
  - DYSPNOEA [None]
  - HEART RATE INCREASED [None]
  - LOSS OF CONSCIOUSNESS [None]
  - OVERDOSE [None]
  - SHOCK [None]
